FAERS Safety Report 4297504-1 (Version None)
Quarter: 2004Q1

REPORT INFORMATION
  Report Type: 
  Country: None (occurrence: None)
  Receive Date: 20040217
  Receipt Date: 20040217
  Transmission Date: 20041129
  Serious: No
  Sender: FDA-Public Use
  Company Number: None

PATIENT
  Sex: Female

DRUGS (3)
  1. THYROID TAB [Suspect]
     Indication: THYROID DISORDER
     Dosage: 1 PO QD
     Route: 048
     Dates: start: 20031103, end: 20041117
  2. CLARINEX [Concomitant]
  3. GLUOCOPHAGE XR [Concomitant]

REACTIONS (2)
  - DRUG INEFFECTIVE [None]
  - PHARMACEUTICAL PRODUCT COMPLAINT [None]
